FAERS Safety Report 5466160-9 (Version None)
Quarter: 2007Q3

REPORT INFORMATION
  Report Type: 
  Country: None (occurrence: None)
  Receive Date: 20070924
  Receipt Date: 20070914
  Transmission Date: 20080115
  Serious: Yes (Death, Other)
  Sender: FDA-Public Use
  Company Number: NO-PFIZER INC-2007054943

PATIENT
  Sex: Male

DRUGS (3)
  1. FRAGMIN [Suspect]
     Indication: MYOCARDIAL INFARCTION
     Dates: start: 20070220, end: 20070223
  2. MAREVAN ^ORION^ [Suspect]
     Indication: MYOCARDIAL INFARCTION
     Route: 048
     Dates: start: 20070220, end: 20070223
  3. PLAVIX [Suspect]
     Indication: MYOCARDIAL INFARCTION
     Route: 048
     Dates: start: 20070220, end: 20070223

REACTIONS (4)
  - CEREBRAL INFARCTION [None]
  - FALL [None]
  - HAEMORRHAGIC DIATHESIS [None]
  - SUBDURAL HAEMATOMA [None]
